FAERS Safety Report 4496437-5 (Version None)
Quarter: 2004Q4

REPORT INFORMATION
  Report Type: 
  Country: None (occurrence: None)
  Receive Date: 20041109
  Receipt Date: 20041101
  Transmission Date: 20050328
  Serious: Yes (Other)
  Sender: FDA-Public Use
  Company Number: US-JNJFOC-20040501364

PATIENT
  Sex: Female

DRUGS (1)
  1. RISPERDAL [Suspect]
     Indication: DRUG USE FOR UNKNOWN INDICATION
     Route: 049
     Dates: start: 20010901, end: 20020901

REACTIONS (4)
  - GALACTORRHOEA [None]
  - INFERTILITY [None]
  - LIVER DISORDER [None]
  - PITUITARY TUMOUR BENIGN [None]
